FAERS Safety Report 7680657-2 (Version None)
Quarter: 2011Q3

REPORT INFORMATION
  Report Type: 
  Country: None (occurrence: None)
  Receive Date: 20110812
  Receipt Date: 20110803
  Transmission Date: 20111222
  Serious: Yes (Hospitalization)
  Sender: FDA-Public Use
  Company Number: GB-ASTRAZENECA-2011SE46525

PATIENT
  Age: 24 Year
  Sex: Male

DRUGS (4)
  1. AZITHROMYCIN [Suspect]
     Indication: IDIOPATHIC PULMONARY FIBROSIS
  2. ESOMEPRAZOLE MAGNESIUM [Suspect]
     Indication: GASTROOESOPHAGEAL REFLUX DISEASE
  3. AZITHROMYCIN [Suspect]
  4. CIPROFLOXACIN [Suspect]

REACTIONS (1)
  - PSEUDOMEMBRANOUS COLITIS [None]
